FAERS Safety Report 16616142 (Version 3)
Quarter: 2019Q3

REPORT INFORMATION
  Report Type: Spontaneous
  Country: JP (occurrence: JP)
  Receive Date: 20190723
  Receipt Date: 20190816
  Transmission Date: 20191004
  Serious: Yes (Other)
  Sender: FDA-Public Use
  Company Number: JP-ROCHE-2353660

PATIENT
  Age: 56 Year
  Sex: Female
  Weight: 64 kg

DRUGS (23)
  1. ACTEMRA [Suspect]
     Active Substance: TOCILIZUMAB
     Route: 042
     Dates: start: 20190713
  2. ALFACALCIDOL [Concomitant]
     Active Substance: ALFACALCIDOL
     Route: 065
     Dates: start: 20190601
  3. ACTEMRA [Suspect]
     Active Substance: TOCILIZUMAB
     Route: 041
     Dates: start: 20190608
  4. VALIXA [Concomitant]
     Active Substance: VALGANCICLOVIR
     Route: 065
     Dates: start: 20190524, end: 20190530
  5. MAGNESIUM OXIDE. [Concomitant]
     Active Substance: MAGNESIUM OXIDE
     Dosage: DOSAGE IS UNCERTAIN.
     Route: 065
     Dates: start: 20190527
  6. PREDNISOLONE. [Suspect]
     Active Substance: PREDNISOLONE
     Route: 048
     Dates: start: 20190622
  7. DAIPHEN [Concomitant]
     Active Substance: SULFAMETHOXAZOLE\TRIMETHOPRIM
     Dosage: DOSAGE IS UNCERTAIN.
     Route: 065
     Dates: start: 20190515, end: 20190614
  8. DAIPHEN [Concomitant]
     Active Substance: SULFAMETHOXAZOLE\TRIMETHOPRIM
     Dosage: DOSAGE IS UNCERTAIN.
     Route: 065
     Dates: start: 20190704
  9. BENET [Concomitant]
     Active Substance: RISEDRONATE SODIUM
     Dosage: DOSAGE IS UNCERTAIN.
     Route: 065
     Dates: start: 20190531
  10. PREDNISOLONE. [Suspect]
     Active Substance: PREDNISOLONE
     Route: 048
     Dates: start: 20190609
  11. PREDNISOLONE. [Suspect]
     Active Substance: PREDNISOLONE
     Route: 048
     Dates: start: 20190626
  12. ACTEMRA [Suspect]
     Active Substance: TOCILIZUMAB
     Route: 041
     Dates: start: 20190629
  13. TAKECAB [Concomitant]
     Active Substance: VONOPRAZAN FUMURATE
     Route: 065
     Dates: start: 20190502, end: 20190531
  14. VALIXA [Concomitant]
     Active Substance: VALGANCICLOVIR
     Route: 065
     Dates: start: 20190608, end: 20190614
  15. GASTER [FAMOTIDINE] [Concomitant]
     Route: 065
     Dates: start: 20190601
  16. CRESTOR [Concomitant]
     Active Substance: ROSUVASTATIN CALCIUM
     Route: 065
     Dates: start: 20190522, end: 20190522
  17. PREDNISOLONE. [Suspect]
     Active Substance: PREDNISOLONE
     Indication: STILL^S DISEASE
     Route: 048
     Dates: start: 20190509
  18. PREDNISOLONE. [Suspect]
     Active Substance: PREDNISOLONE
     Dosage: DOSE INTERVAL UNCERTAINTY
     Route: 048
     Dates: start: 20190530
  19. PREDNISOLONE. [Suspect]
     Active Substance: PREDNISOLONE
     Route: 048
     Dates: start: 20190710
  20. METHYLPREDNISOLONE. [Concomitant]
     Active Substance: METHYLPREDNISOLONE
     Route: 065
     Dates: start: 20190629, end: 20190630
  21. ACTEMRA [Suspect]
     Active Substance: TOCILIZUMAB
     Indication: STILL^S DISEASE
     Route: 041
     Dates: start: 20190528
  22. PREDNISOLONE. [Suspect]
     Active Substance: PREDNISOLONE
     Route: 048
     Dates: start: 20190704
  23. METHYLPREDNISOLONE. [Concomitant]
     Active Substance: METHYLPREDNISOLONE
     Route: 065
     Dates: start: 20190527

REACTIONS (4)
  - Platelet count decreased [Recovered/Resolved]
  - Serum ferritin increased [Unknown]
  - White blood cell count decreased [Recovered/Resolved]
  - Hepatic function abnormal [Recovered/Resolved]

NARRATIVE: CASE EVENT DATE: 20190613
